FAERS Safety Report 5265071-1 (Version None)
Quarter: 2007Q1

REPORT INFORMATION
  Report Type: 
  Country: None (occurrence: None)
  Receive Date: 20061122
  Receipt Date: 20051212
  Transmission Date: 20070707
  Serious: Yes (Hospitalization)
  Sender: FDA-Public Use
  Company Number: 2006MP001091

PATIENT
  Age: 74 Year
  Sex: Female

DRUGS (2)
  1. GLIADEL [Suspect]
     Indication: GLIOBLASTOMA MULTIFORME
     Dosage: 53.9  MG; UNKNOWN; ICER
     Dates: start: 20051014
  2. CORTISONE ACETATE [Concomitant]

REACTIONS (1)
  - INCISION SITE INFECTION [None]
